FAERS Safety Report 9774806 (Version 3)
Quarter: 2014Q3

REPORT INFORMATION
  Report Type: Report from Study
  Country: AU (occurrence: AU)
  Receive Date: 20131220
  Receipt Date: 20140808
  Transmission Date: 20150326
  Serious: Yes (Hospitalization)
  Sender: FDA-Public Use
  Company Number: AU-MPIJNJ-2013-02637

PATIENT

DRUGS (16)
  1. DEXAMETHASONE. [Suspect]
     Active Substance: DEXAMETHASONE
     Indication: PLASMA CELL MYELOMA
     Dosage: UNK
     Route: 065
     Dates: start: 20120727, end: 20120729
  2. PARACETAMOL [Concomitant]
     Active Substance: ACETAMINOPHEN
     Indication: ARTHRITIS
  3. DAPSONE. [Concomitant]
     Active Substance: DAPSONE
     Indication: PROPHYLAXIS
     Dosage: UNK
     Dates: start: 20120731, end: 20130405
  4. ESOMEPRAZOLE [Concomitant]
     Active Substance: ESOMEPRAZOLE
     Indication: PROPHYLAXIS
     Dosage: UNK
     Dates: start: 20120731
  5. RILUZOLE. [Concomitant]
     Active Substance: RILUZOLE
  6. CLEXANE [Concomitant]
     Active Substance: ENOXAPARIN SODIUM
     Indication: THROMBOSIS PROPHYLAXIS
     Dosage: UNK
     Dates: start: 20120815
  7. OXYCONTIN [Concomitant]
     Active Substance: OXYCODONE HYDROCHLORIDE
     Indication: BONE PAIN
  8. GLICLAZIDE [Concomitant]
     Active Substance: GLICLAZIDE
     Indication: DIABETES MELLITUS
  9. CYCLOPHOSPHAMIDE. [Suspect]
     Active Substance: CYCLOPHOSPHAMIDE
     Indication: PLASMA CELL MYELOMA
     Dosage: 500 MG, UNK
     Route: 065
     Dates: start: 20120731, end: 20121001
  10. VALACICLOVIR [Concomitant]
     Active Substance: VALACYCLOVIR HYDROCHLORIDE
     Indication: PROPHYLAXIS
     Dosage: UNK
     Dates: start: 20120731
  11. FRUSEMIDE                          /00032601/ [Concomitant]
     Active Substance: FUROSEMIDE
     Indication: RENAL FAILURE
  12. VELCADE [Suspect]
     Active Substance: BORTEZOMIB
     Indication: PLASMA CELL MYELOMA
     Dosage: 2.1 MG, UNK
     Route: 065
     Dates: start: 20120731, end: 20120927
  13. GRANISETRON [Concomitant]
     Active Substance: GRANISETRON
     Indication: PROPHYLAXIS
     Dosage: UNK
     Dates: start: 20120731
  14. CLEXANE [Concomitant]
     Active Substance: ENOXAPARIN SODIUM
     Indication: LEFT VENTRICULAR DYSFUNCTION
     Dosage: UNK
     Dates: start: 20120909
  15. THALIDOMIDE [Suspect]
     Active Substance: THALIDOMIDE
     Indication: PLASMA CELL MYELOMA
     Dosage: 100 MG, UNK
     Route: 065
     Dates: start: 20130328, end: 20130404
  16. ALLOPURINOL. [Concomitant]
     Active Substance: ALLOPURINOL
     Indication: PROPHYLAXIS
     Dosage: UNK
     Dates: start: 20120731

REACTIONS (1)
  - Lobar pneumonia [Recovered/Resolved]

NARRATIVE: CASE EVENT DATE: 20130404
